FAERS Safety Report 14304755 (Version 1)
Quarter: 2017Q4

REPORT INFORMATION
  Report Type: Spontaneous
  Country: JP (occurrence: JP)
  Receive Date: 20171219
  Receipt Date: 20171219
  Transmission Date: 20180321
  Serious: Yes (Hospitalization)
  Sender: FDA-Public Use
  Company Number: JP-OTSUKA-007035

PATIENT
  Age: 80 Year
  Sex: Female

DRUGS (8)
  1. ATORVASTATIN [Suspect]
     Active Substance: ATORVASTATIN
     Dosage: LIPITOR TABLET.
     Route: 048
     Dates: end: 20090709
  2. ABILIFY [Suspect]
     Active Substance: ARIPIPRAZOLE
     Dosage: 3 MG, QD
     Route: 048
     Dates: start: 20090606, end: 20090709
  3. NORVASC [Suspect]
     Active Substance: AMLODIPINE BESYLATE
     Dosage: 2.5 MG, QD
     Route: 048
     Dates: end: 20090709
  4. BLOPRESS [Suspect]
     Active Substance: CANDESARTAN CILEXETIL
     Route: 048
     Dates: end: 20090709
  5. ARICEPT [Suspect]
     Active Substance: DONEPEZIL HYDROCHLORIDE
     Dosage: 5 MG, QD
     Route: 048
     Dates: end: 20090709
  6. STAYBLA [Suspect]
     Active Substance: IMIDAFENACIN
     Route: 048
     Dates: end: 20090709
  7. LIPITOR [Suspect]
     Active Substance: ATORVASTATIN CALCIUM
     Route: 048
     Dates: end: 20090709
  8. DONEPEZIL. [Suspect]
     Active Substance: DONEPEZIL
     Dosage: ARICEPT JPN
     Route: 048
     Dates: end: 20090709

REACTIONS (1)
  - Decreased activity [Not Recovered/Not Resolved]

NARRATIVE: CASE EVENT DATE: 20090709
